FAERS Safety Report 4826168-0 (Version None)
Quarter: 2005Q4

REPORT INFORMATION
  Report Type: 
  Country: None (occurrence: None)
  Receive Date: 20051111
  Receipt Date: 20051108
  Transmission Date: 20060501
  Serious: Yes (Life-Threatening, Hospitalization)
  Sender: FDA-Public Use
  Company Number: PHBS2005JP16464

PATIENT
  Age: 38 Year
  Sex: Female

DRUGS (4)
  1. VOLTAREN [Suspect]
     Indication: DYSMENORRHOEA
     Dosage: 100 MG/DAY
     Route: 048
     Dates: start: 20010101, end: 20050405
  2. VOLTAREN [Suspect]
     Dosage: 150 MG IN TWO DAYS
     Dates: start: 20050406, end: 20050407
  3. VOLTAREN [Suspect]
     Dosage: 100 MG/DAY
     Route: 048
     Dates: start: 20010101, end: 20050405
  4. VOLTAREN [Suspect]
     Dosage: 16 TAB IN 2 DAYS
     Route: 048
     Dates: start: 20050406, end: 20050407

REACTIONS (10)
  - ALANINE AMINOTRANSFERASE INCREASED [None]
  - ASPARTATE AMINOTRANSFERASE INCREASED [None]
  - BLOOD BILIRUBIN INCREASED [None]
  - BLOOD CREATININE INCREASED [None]
  - BLOOD LACTATE DEHYDROGENASE INCREASED [None]
  - BLOOD UREA INCREASED [None]
  - HAEMOGLOBIN DECREASED [None]
  - HAEMOLYTIC URAEMIC SYNDROME [None]
  - PLATELET COUNT DECREASED [None]
  - RENAL FAILURE ACUTE [None]
